FAERS Safety Report 21640275 (Version 1)
Quarter: 2022Q4

REPORT INFORMATION
  Report Type: Report from Study
  Country: US (occurrence: US)
  Receive Date: 20221124
  Receipt Date: 20221124
  Transmission Date: 20230112
  Serious: Yes (Congenital Anomaly)
  Sender: FDA-Public Use
  Company Number: US-TEVA-2022-US-2831031

PATIENT
  Age: 6 Month
  Sex: Male

DRUGS (2)
  1. CISPLATIN [Suspect]
     Active Substance: CISPLATIN
     Indication: Cervix carcinoma stage I
     Dosage: 75 MG/M2
     Route: 064
  2. PACLITAXEL [Suspect]
     Active Substance: PACLITAXEL
     Indication: Cervix carcinoma stage I
     Dosage: 135 MG/M2
     Route: 064

REACTIONS (3)
  - Deafness congenital [Recovering/Resolving]
  - Deafness neurosensory [Recovering/Resolving]
  - Foetal exposure during pregnancy [Unknown]
